FAERS Safety Report 9371835 (Version 2)
Quarter: 2013Q3

REPORT INFORMATION
  Report Type: Spontaneous
  Country: FR (occurrence: FR)
  Receive Date: 20130627
  Receipt Date: 20130816
  Transmission Date: 20140515
  Serious: Yes (Death, Hospitalization)
  Sender: FDA-Public Use
  Company Number: FR-PFIZER INC-2013190447

PATIENT
  Age: 64 Year
  Sex: Male
  Weight: 71 kg

DRUGS (9)
  1. TRIATEC [Suspect]
     Indication: ACUTE CORONARY SYNDROME
     Dosage: 5 MG, DAILY
     Route: 048
     Dates: start: 20130606, end: 20130615
  2. TRIATEC [Suspect]
     Indication: HYPERTENSION
  3. CRESTOR [Suspect]
     Indication: PROPHYLAXIS
     Dosage: 10 MG, DAILY
     Route: 048
     Dates: start: 20130606, end: 20130615
  4. BRILIQUE [Suspect]
     Indication: ACUTE CORONARY SYNDROME
     Dosage: 90 MG, TWICE DAILY
     Route: 048
     Dates: start: 20130606, end: 20130615
  5. ASPIRINE [Suspect]
     Indication: ACUTE CORONARY SYNDROME
     Dosage: UNK
     Route: 048
     Dates: start: 20130616
  6. ASPIRINE [Suspect]
     Dosage: UNK
     Route: 048
  7. EFIENT [Concomitant]
     Dosage: UNK
     Dates: start: 20130616
  8. KARDEGIC [Concomitant]
     Dosage: UNK
     Dates: start: 20130606, end: 20130615
  9. SECTRAL [Concomitant]
     Dosage: UNK
     Dates: start: 20130606, end: 20130615

REACTIONS (3)
  - Drug dose omission [Fatal]
  - Thrombosis in device [Fatal]
  - Angioedema [Recovering/Resolving]
